FAERS Safety Report 24096385 (Version 2)
Quarter: 2025Q3

REPORT INFORMATION
  Report Type: Spontaneous
  Country: JP (occurrence: JP)
  Receive Date: 20240716
  Receipt Date: 20250722
  Transmission Date: 20251020
  Serious: Yes (Hospitalization, Other)
  Sender: RANBAXY
  Company Number: JP-SUN PHARMACEUTICAL INDUSTRIES LTD-2024R1-456279

PATIENT
  Age: 66 Year
  Sex: Female

DRUGS (3)
  1. METHOTREXATE [Suspect]
     Active Substance: METHOTREXATE
     Indication: Rheumatoid arthritis
     Route: 065
  2. IGURATIMOD [Concomitant]
     Active Substance: IGURATIMOD
     Indication: Rheumatoid arthritis
     Route: 065
  3. SULFASALAZINE [Concomitant]
     Active Substance: SULFASALAZINE
     Indication: Rheumatoid arthritis
     Route: 065

REACTIONS (2)
  - Lymphoproliferative disorder [Recovered/Resolved]
  - Diffuse large B-cell lymphoma [Recovered/Resolved]
